FAERS Safety Report 6551898-2 (Version None)
Quarter: 2010Q1

REPORT INFORMATION
  Report Type: 
  Country: None (occurrence: None)
  Receive Date: 20100126
  Receipt Date: 20100115
  Transmission Date: 20100710
  Serious: Yes (Hospitalization)
  Sender: FDA-Public Use
  Company Number: ID-PFIZER INC-2010006163

PATIENT
  Age: 56 Year
  Sex: Female

DRUGS (3)
  1. ZITHROMAX [Suspect]
     Indication: POSTOPERATIVE CARE
     Dosage: 2000 MG, SINGLE
     Route: 048
     Dates: start: 20091228, end: 20091228
  2. PONSTAN [Concomitant]
     Dosage: 500 MG, UNK
     Route: 048
     Dates: start: 20091228
  3. TELFAST [Concomitant]
     Dosage: UNK
     Route: 048
     Dates: start: 20091228

REACTIONS (2)
  - MELAENA [None]
  - VOMITING [None]
